FAERS Safety Report 10808398 (Version 1)
Quarter: 2015Q1

REPORT INFORMATION
  Report Type: Report from Study
  Country: US (occurrence: US)
  Receive Date: 20150217
  Receipt Date: 20150217
  Transmission Date: 20150721
  Serious: No
  Sender: FDA-Public Use
  Company Number: US-ABBVIE-14K-163-1261908-00

PATIENT
  Age: 33 Year
  Sex: Male

DRUGS (12)
  1. HUMIRA [Suspect]
     Active Substance: ADALIMUMAB
     Dates: start: 2014
  2. HUMIRA [Suspect]
     Active Substance: ADALIMUMAB
     Indication: COLITIS ULCERATIVE
     Dates: start: 20140426, end: 20140426
  3. NEXIUM [Concomitant]
     Active Substance: ESOMEPRAZOLE MAGNESIUM
     Indication: COLITIS ULCERATIVE
  4. PROBENECID. [Concomitant]
     Active Substance: PROBENECID
     Indication: GOUT
  5. WELLBUTRIN [Concomitant]
     Active Substance: BUPROPION HYDROCHLORIDE
     Indication: DEPRESSION
  6. ASACOL [Concomitant]
     Active Substance: MESALAMINE
     Indication: COLITIS ULCERATIVE
  7. METFORMIN [Concomitant]
     Active Substance: METFORMIN HYDROCHLORIDE
     Indication: DIABETES MELLITUS
  8. JANUVIA [Concomitant]
     Active Substance: SITAGLIPTIN PHOSPHATE
     Indication: DIABETES MELLITUS
  9. BRIMONIDINE [Concomitant]
     Active Substance: BRIMONIDINE\BRIMONIDINE TARTRATE
     Indication: GLAUCOMA
  10. HUMIRA [Suspect]
     Active Substance: ADALIMUMAB
     Dates: start: 20140510, end: 20140510
  11. SUMATRIPTAN. [Suspect]
     Active Substance: SUMATRIPTAN
     Indication: HEADACHE
  12. TIMOLOL [Concomitant]
     Active Substance: TIMOLOL
     Indication: GLAUCOMA

REACTIONS (4)
  - Drug ineffective [Unknown]
  - Frequent bowel movements [Not Recovered/Not Resolved]
  - Headache [Not Recovered/Not Resolved]
  - Depression [Not Recovered/Not Resolved]

NARRATIVE: CASE EVENT DATE: 2014
